FAERS Safety Report 11717650 (Version 1)
Quarter: 2015Q4

REPORT INFORMATION
  Report Type: Spontaneous
  Country: GB (occurrence: GB)
  Receive Date: 20151110
  Receipt Date: 20151110
  Transmission Date: 20160304
  Serious: Yes (Hospitalization)
  Sender: FDA-Public Use
  Company Number: GB-ACCORD-035109

PATIENT
  Age: 74 Year
  Sex: Male

DRUGS (17)
  1. BIOTENE DRY MOUTH [Concomitant]
  2. EZETIMIBE. [Concomitant]
     Active Substance: EZETIMIBE
  3. NICORANDIL [Concomitant]
     Active Substance: NICORANDIL
  4. SODIUM BICARBONATE. [Concomitant]
     Active Substance: SODIUM BICARBONATE
  5. CARBOCISTEINE/CARBOCISTEINE LYSINE/CARBOCISTEINE SODIUM [Concomitant]
  6. FUROSEMIDE. [Concomitant]
     Active Substance: FUROSEMIDE
  7. NEBIVOLOL. [Concomitant]
     Active Substance: NEBIVOLOL
  8. RHINOCORT [Concomitant]
     Active Substance: BUDESONIDE
  9. TELMISARTAN. [Concomitant]
     Active Substance: TELMISARTAN
  10. SERETIDE [Concomitant]
     Active Substance: FLUTICASONE FUROATE\SALMETEROL XINAFOATE
  11. ALLOPURINOL/ALLOPURINOL SODIUM [Suspect]
     Active Substance: ALLOPURINOL SODIUM
     Indication: GOUT
     Route: 048
     Dates: start: 20150831, end: 20150927
  12. CHLORPHENAMINE/CHLORPHENAMINE MALEATE/CHLORPHENAMINE RESINATE/CHLORPHENAMINE TANNATE [Concomitant]
  13. ACETYLSALICYLIC ACID [Concomitant]
     Active Substance: ASPIRIN
  14. OMEPRAZOLE. [Concomitant]
     Active Substance: OMEPRAZOLE
  15. ROSUVASTATIN/ROSUVASTATIN CALCIUM [Concomitant]
  16. GLYCOPYRRONIUM [Concomitant]
     Active Substance: GLYCOPYRRONIUM
  17. TABPHYN MR [Concomitant]

REACTIONS (3)
  - Type IV hypersensitivity reaction [Not Recovered/Not Resolved]
  - Dry skin [Not Recovered/Not Resolved]
  - Blister [Not Recovered/Not Resolved]

NARRATIVE: CASE EVENT DATE: 20150927
